FAERS Safety Report 6649284-X (Version None)
Quarter: 2010Q1

REPORT INFORMATION
  Report Type: 
  Country: None (occurrence: None)
  Receive Date: 20100324
  Receipt Date: 20100311
  Transmission Date: 20100710
  Serious: Yes (Disabling, Other)
  Sender: FDA-Public Use
  Company Number: PHEH2008US08145

PATIENT
  Sex: Female

DRUGS (41)
  1. AREDIA [Suspect]
     Dosage: 30 MG, UNK
     Dates: start: 20000608, end: 20030401
  2. ZOMETA [Suspect]
     Dosage: 4 MG, UNK
     Dates: start: 20011005, end: 20060515
  3. ALBUTEROL [Concomitant]
  4. TRAMADOL HCL [Concomitant]
  5. MIRAPEX [Concomitant]
  6. PREDNISONE [Concomitant]
  7. CHLORHEXIDINE GLUCONATE [Concomitant]
  8. AZITHROMYCIN [Concomitant]
  9. ACETAMINOPHEN AND HYDROCODONE BITARTRATE [Concomitant]
  10. LIPITOR [Concomitant]
  11. MOBIC [Concomitant]
  12. NEXIUM [Concomitant]
  13. SYNTHROID [Concomitant]
  14. ZITHROMAX [Concomitant]
  15. ZYRTEC [Concomitant]
  16. VIOXX [Concomitant]
  17. CALCIUM W/VITAMIN D NOS [Concomitant]
  18. ULTRACET [Concomitant]
  19. VICODIN [Concomitant]
  20. BONIVA [Concomitant]
     Dosage: 150 MG, QMO
  21. METRONIDAZOLE [Concomitant]
  22. AMITRIPTYLINE HCL [Concomitant]
  23. ZOMIG [Concomitant]
  24. CELEBREX [Concomitant]
  25. SPECTRACEF [Concomitant]
  26. GUAIFENESIN [Concomitant]
  27. HYDROCODONE [Concomitant]
  28. CLOTRIMAZOLE [Concomitant]
  29. METHYLPREDNISOLONE [Concomitant]
  30. CEFADROXIL [Concomitant]
  31. HYDROCHLOROTHIAZIDE [Concomitant]
  32. AMOXICILLIN [Concomitant]
  33. PROAIR HFA [Concomitant]
  34. TAMOXIFEN CITRATE [Concomitant]
  35. INFLUENZA VACCINE [Concomitant]
  36. ESOMEPRAZOLE [Concomitant]
  37. DURICEF [Concomitant]
  38. LOTRISONE [Concomitant]
  39. VALTREX [Concomitant]
  40. NEURONTIN [Concomitant]
  41. IBUPROFEN [Concomitant]

REACTIONS (42)
  - ANAEMIA [None]
  - ANXIETY [None]
  - ARTHRALGIA [None]
  - AUTONOMIC NERVOUS SYSTEM IMBALANCE [None]
  - BACK PAIN [None]
  - BONE DEBRIDEMENT [None]
  - BONE DISORDER [None]
  - CHRONIC SINUSITIS [None]
  - CONTUSION [None]
  - DECREASED INTEREST [None]
  - DISABILITY [None]
  - DIVERTICULUM [None]
  - DRY EYE [None]
  - DRY MOUTH [None]
  - DYSLIPIDAEMIA [None]
  - EAR PAIN [None]
  - ENDODONTIC PROCEDURE [None]
  - EUSTACHIAN TUBE DYSFUNCTION [None]
  - FALL [None]
  - FIBROMYALGIA [None]
  - GASTROOESOPHAGEAL REFLUX DISEASE [None]
  - GENERAL PHYSICAL HEALTH DETERIORATION [None]
  - HEADACHE [None]
  - HYPERCHOLESTEROLAEMIA [None]
  - HYPERTENSION [None]
  - HYPOTHYROIDISM [None]
  - INJURY [None]
  - INTERVERTEBRAL DISC DEGENERATION [None]
  - LIVER FUNCTION TEST ABNORMAL [None]
  - MUSCLE STRAIN [None]
  - MYALGIA [None]
  - MYOSITIS [None]
  - NODULE [None]
  - OSTEOARTHRITIS [None]
  - OSTEONECROSIS [None]
  - PAIN [None]
  - PURULENT DISCHARGE [None]
  - RENAL CYST [None]
  - SCIATICA [None]
  - SICCA SYNDROME [None]
  - TINEA CRURIS [None]
  - TOOTH EXTRACTION [None]
